FAERS Safety Report 17616925 (Version 2)
Quarter: 2020Q2

REPORT INFORMATION
  Report Type: Spontaneous
  Country: US (occurrence: US)
  Receive Date: 20200402
  Receipt Date: 20200413
  Transmission Date: 20200713
  Serious: Yes (Other)
  Sender: FDA-Public Use
  Company Number: US-SA-2020SA078367

PATIENT
  Age: 70 Year
  Sex: Female

DRUGS (4)
  1. LOSARTAN. [Concomitant]
     Active Substance: LOSARTAN
  2. HYDROCHLOROTHIAZIDE. [Concomitant]
     Active Substance: HYDROCHLOROTHIAZIDE
  3. METHOTREXATE. [Suspect]
     Active Substance: METHOTREXATE
     Indication: RHEUMATOID ARTHRITIS
  4. LEFLUNOMIDE. [Suspect]
     Active Substance: LEFLUNOMIDE
     Indication: RHEUMATOID ARTHRITIS

REACTIONS (12)
  - Human herpesvirus 6 encephalitis [Recovering/Resolving]
  - Cerebellar ataxia [Recovering/Resolving]
  - Central nervous system lesion [Recovering/Resolving]
  - Nystagmus [Recovering/Resolving]
  - Dysphagia [Recovered/Resolved]
  - Diplopia [Recovered/Resolved]
  - Hemiparesis [Recovering/Resolving]
  - Transient ischaemic attack [Recovered/Resolved]
  - Brain oedema [Recovering/Resolving]
  - Gait disturbance [Recovered/Resolved]
  - Dysarthria [Recovering/Resolving]
  - Human herpesvirus 6 infection reactivation [Recovering/Resolving]
